FAERS Safety Report 11061040 (Version 2)
Quarter: 2015Q2

REPORT INFORMATION
  Report Type: Spontaneous
  Country: CH (occurrence: CH)
  Receive Date: 20150424
  Receipt Date: 20150424
  Transmission Date: 20150821
  Serious: Yes (Other)
  Sender: FDA-Public Use
  Company Number: CH-SUN PHARMACEUTICAL INDUSTRIES LTD-2015RR-96029

PATIENT
  Age: 54 Year
  Sex: Male

DRUGS (7)
  1. KETAMINE [Suspect]
     Active Substance: KETAMINE
     Indication: SEDATION
     Dosage: UNK
     Route: 065
  2. PIPAMPERONE [Suspect]
     Active Substance: PIPAMPERONE
     Indication: CONDITION AGGRAVATED
     Dosage: 20 MG, DAILY, AT NIGHT
     Route: 048
  3. BIPERIDENE [Suspect]
     Active Substance: BIPERIDEN
     Indication: MUSCLE RIGIDITY
  4. FENTANYL. [Suspect]
     Active Substance: FENTANYL
     Dosage: UNK
     Route: 065
  5. RISPERIDONE. [Suspect]
     Active Substance: RISPERIDONE
     Indication: DELIRIUM
     Dosage: 0.5 MG, AT NIGHT
     Route: 048
  6. PROPOFOL. [Suspect]
     Active Substance: PROPOFOL
     Indication: SEDATION
     Dosage: UNK
     Route: 065
  7. BIPERIDENE [Suspect]
     Active Substance: BIPERIDEN
     Indication: MYOCLONUS
     Dosage: 5 MG
     Route: 042

REACTIONS (5)
  - Muscle rigidity [Recovered/Resolved]
  - Condition aggravated [Recovered/Resolved]
  - Extrapyramidal disorder [Recovered/Resolved]
  - Myoclonus [Recovered/Resolved]
  - Delirium [Recovered/Resolved]
